FAERS Safety Report 8798995 (Version 2)
Quarter: 2013Q2

REPORT INFORMATION
  Report Type: Report from Study
  Country: ES (occurrence: ES)
  Receive Date: 20120920
  Receipt Date: 20130423
  Transmission Date: 20140414
  Serious: Yes (Hospitalization)
  Sender: FDA-Public Use
  Company Number: ES-BRISTOL-MYERS SQUIBB COMPANY-16969362

PATIENT
  Age: 71 Year
  Sex: Female

DRUGS (5)
  1. IPILIMUMAB [Suspect]
     Indication: METASTATIC MALIGNANT MELANOMA
     Route: 042
     Dates: start: 20120517, end: 20120719
  2. CAPTOPRIL [Concomitant]
     Dates: start: 2009, end: 20120820
  3. LATANOPROST [Concomitant]
     Dates: start: 20070607
  4. DIHYDROERGOTOXINE MESYLATE [Concomitant]
     Dates: start: 19920607
  5. SULPIRIDE [Concomitant]
     Dates: start: 20111107

REACTIONS (1)
  - Pyrexia [Recovered/Resolved]
